FAERS Safety Report 10067256 (Version 1)
Quarter: 2014Q2

REPORT INFORMATION
  Report Type: Spontaneous
  Country: US (occurrence: None)
  Receive Date: 20140407
  Receipt Date: 20140407
  Transmission Date: 20141212
  Serious: Yes (Death)
  Sender: FDA-Public Use
  Company Number: UTC-046555

PATIENT
  Age: 68 Year
  Sex: Male

DRUGS (7)
  1. REMODULIN (5 MILLIGRAM/MILLILITERS, INJECTION FOR INFUSION (TREPROSTINIL SODIUM) [Suspect]
     Indication: PULMONARY HYPERTENSION
     Dosage: 0.052 UG/KG, 1 IN 1 MIN
     Route: 041
     Dates: start: 20111227
  2. LETAIRIS [Concomitant]
  3. IRON [Concomitant]
  4. REMERON [Concomitant]
  5. MORPHINE [Concomitant]
  6. ADVIL [Concomitant]
  7. PRAVASTATIN [Concomitant]

REACTIONS (1)
  - Pulmonary hypertension [None]
